FAERS Safety Report 5808979-8 (Version None)
Quarter: 2008Q3

REPORT INFORMATION
  Report Type: 
  Country: None (occurrence: None)
  Receive Date: 20080710
  Receipt Date: 20080710
  Transmission Date: 20090109
  Serious: Yes (Other)
  Sender: FDA-Public Use
  Company Number: None

PATIENT
  Age: 54 Year
  Sex: Female
  Weight: 68.0396 kg

DRUGS (1)
  1. VYTORIN [Suspect]
     Indication: BLOOD CHOLESTEROL
     Dosage: ONE ONCE A DAY PO
     Route: 048
     Dates: start: 20061101, end: 20080503

REACTIONS (3)
  - GAIT DISTURBANCE [None]
  - JOINT SWELLING [None]
  - MYALGIA [None]
